FAERS Safety Report 8103116-1 (Version None)
Quarter: 2012Q1

REPORT INFORMATION
  Report Type: 
  Country: None (occurrence: None)
  Receive Date: 20120201
  Receipt Date: 20120126
  Transmission Date: 20120608
  Serious: Yes (Other)
  Sender: FDA-Public Use
  Company Number: JP-JNJFOC-20120112335

PATIENT
  Age: 61 Year
  Sex: Male

DRUGS (3)
  1. TRAMADOL HYDROCHLORIDE/ACETAMINOPHEN [Suspect]
     Indication: PAIN
     Route: 048
     Dates: start: 20110822, end: 20111212
  2. MECOBALAMIN [Concomitant]
     Dosage: ONCE A DAY
     Route: 048
  3. AMLODIPINE BESYLATE [Concomitant]
     Dosage: ONCE A DAY
     Route: 048

REACTIONS (1)
  - GASTRIC ULCER [None]
